FAERS Safety Report 15297164 (Version 1)
Quarter: 2018Q3

REPORT INFORMATION
  Report Type: Spontaneous
  Country: US (occurrence: US)
  Receive Date: 20180808
  Receipt Date: 20180808
  Transmission Date: 20181010
  Serious: Yes (Hospitalization)
  Sender: FDA-Public Use
  Company Number: None

PATIENT
  Sex: Female

DRUGS (7)
  1. ONDANSETRON, PLAQUENIL [Concomitant]
  2. METHOTREXATE, NAPROXEN [Concomitant]
  3. VITAMIN B, VITAMIN D [Concomitant]
  4. XELJANZ [Suspect]
     Active Substance: TOFACITINIB CITRATE
     Indication: RHEUMATOID ARTHRITIS
     Route: 048
     Dates: start: 20161231
  5. BIOTIN, CYMBALTA [Concomitant]
  6. PREDNISONE, TAMSULOSIN [Concomitant]
  7. FLOMAX, FOLIC ACID [Concomitant]

REACTIONS (1)
  - Nephrolithiasis [None]
